FAERS Safety Report 9128893 (Version 1)
Quarter: 2013Q1

REPORT INFORMATION
  Report Type: Spontaneous
  Country: GB (occurrence: GB)
  Receive Date: 20130125
  Receipt Date: 20130125
  Transmission Date: 20140127
  Serious: Yes (Other)
  Sender: FDA-Public Use
  Company Number: GB-TEVA-381857ISR

PATIENT
  Sex: Female

DRUGS (14)
  1. ALENDRONIC ACID [Suspect]
     Route: 065
  2. ADCAL [Concomitant]
  3. DOXAZOSIN [Concomitant]
  4. INSULIN [Concomitant]
  5. FUROSEMIDE [Concomitant]
  6. GLICLAZIDE [Concomitant]
  7. FLUTICASONE [Concomitant]
  8. SALMETEROL INHALER [Concomitant]
  9. LOSARTAN [Concomitant]
  10. PRAVASSTATIN [Concomitant]
  11. LANSOPRAZOLE [Concomitant]
  12. METFORMIN [Concomitant]
  13. ASPIRIN [Concomitant]
  14. CITALOPRAM [Concomitant]

REACTIONS (1)
  - Blood pressure increased [Unknown]
